FAERS Safety Report 25285025 (Version 3)
Quarter: 2025Q2

REPORT INFORMATION
  Report Type: Report from Study
  Country: US (occurrence: US)
  Receive Date: 20250508
  Receipt Date: 20250611
  Transmission Date: 20250717
  Serious: Yes (Other)
  Sender: AMGEN
  Company Number: US-AMGEN-USASL2025062378

PATIENT
  Age: 67 Year
  Sex: Female

DRUGS (17)
  1. REPATHA [Suspect]
     Active Substance: EVOLOCUMAB
     Indication: Cardiovascular disorder
     Dosage: 140 MILLIGRAM, Q2WK
     Route: 058
     Dates: start: 20250227
  2. REPATHA [Suspect]
     Active Substance: EVOLOCUMAB
     Indication: Carotid artery occlusion
     Dosage: 140 MILLIGRAM, Q2WK
     Route: 058
  3. REPATHA [Suspect]
     Active Substance: EVOLOCUMAB
     Indication: Carotid artery stenosis
  4. DELTASONE [Concomitant]
     Active Substance: PREDNISONE
     Dosage: 20 MILLIGRAM, 3 TABLETS, QD FOR 2 DAYS
     Route: 048
     Dates: start: 20250329, end: 20250331
  5. ACIDOPHILUS [Concomitant]
     Active Substance: LACTOBACILLUS ACIDOPHILUS
     Dosage: UNK UNK, QD
     Route: 048
  6. ECOTRIN [Concomitant]
     Active Substance: ASPIRIN
     Dosage: 81 MILLIGRAM, QD
     Route: 048
  7. LIPITOR [Concomitant]
     Active Substance: ATORVASTATIN CALCIUM
     Route: 048
  8. VITAMIN B COMPLEX [Concomitant]
     Active Substance: CYANOCOBALAMIN\DEXPANTHENOL\NIACINAMIDE\PYRIDOXINE HYDROCHLORIDE\RIBOFLAVIN 5^-PHOSPHATE SODIUM\THIA
     Dosage: UNK UNK, QD
     Route: 048
  9. COENZYME Q10 [Concomitant]
     Active Substance: DIETARY SUPPLEMENT\UBIDECARENONE
     Dosage: UNK UNK, QD
     Route: 048
  10. HERBALS\LINSEED OIL [Concomitant]
     Active Substance: HERBALS\LINSEED OIL
     Dosage: UNK UNK, QD
     Route: 048
  11. FLAXSEED [Concomitant]
     Active Substance: FLAX SEED
     Dosage: UNK UNK, QD
     Route: 048
  12. SYNTHROID [Concomitant]
     Active Substance: LEVOTHYROXINE SODIUM
     Route: 048
  13. DIETARY SUPPLEMENT [Concomitant]
     Active Substance: DIETARY SUPPLEMENT
     Dosage: 100 MILLIGRAM, BID
     Route: 048
  14. VITAMINS [Concomitant]
     Active Substance: VITAMINS
     Route: 048
  15. NATTOKINASE [Concomitant]
     Active Substance: NATTOKINASE
     Dosage: UNK UNK, QD
     Route: 048
  16. UBIQUINOL [Concomitant]
     Active Substance: UBIQUINOL
     Dosage: 100 MILLIGRAM, BID
     Route: 048
  17. SODIUM CHLORIDE [Concomitant]
     Active Substance: SODIUM CHLORIDE
     Route: 065

REACTIONS (12)
  - Pancreatic failure [Unknown]
  - Colitis microscopic [Unknown]
  - Device difficult to use [Unknown]
  - Red blood cell count decreased [Unknown]
  - Lymphocyte count decreased [Unknown]
  - Blood calcium decreased [Unknown]
  - Protein total decreased [Unknown]
  - Blood pressure abnormal [Unknown]
  - Enlarged uvula [Recovered/Resolved]
  - Emotional distress [Unknown]
  - Renal disorder [Unknown]
  - Urticaria [Unknown]

NARRATIVE: CASE EVENT DATE: 20250101
